FAERS Safety Report 6592773-7 (Version None)
Quarter: 2010Q1

REPORT INFORMATION
  Report Type: 
  Country: None (occurrence: None)
  Receive Date: 20100212
  Receipt Date: 20100128
  Transmission Date: 20100710
  Serious: Yes (Other)
  Sender: FDA-Public Use
  Company Number: 21-703-2010-00001

PATIENT
  Sex: 0
  Weight: 3.4 kg

DRUGS (3)
  1. PRISMASOL BGK 2/0 [Suspect]
     Indication: FLUID REPLACEMENT
     Dosage: HEMODIALYSIS, INTRAVENOUS
     Route: 042
     Dates: start: 20100128
  2. PRISMA SN: UNKNOWN [Concomitant]
  3. PRISMA M-60 FILTER SET [Concomitant]

REACTIONS (3)
  - DEHYDRATION [None]
  - OFF LABEL USE [None]
  - WRONG TECHNIQUE IN DRUG USAGE PROCESS [None]
